FAERS Safety Report 6941081-0 (Version None)
Quarter: 2010Q3

REPORT INFORMATION
  Report Type: 
  Country: None (occurrence: None)
  Receive Date: 20100825
  Receipt Date: 20100820
  Transmission Date: 20110219
  Serious: Yes (Other)
  Sender: FDA-Public Use
  Company Number: US-BRISTOL-MYERS SQUIBB COMPANY-15250491

PATIENT
  Age: 27 Year
  Sex: Female

DRUGS (4)
  1. ABILIFY [Suspect]
     Indication: BIPOLAR DISORDER
     Route: 048
  2. IRON [Concomitant]
  3. CALCIUM D3 SANDOZ [Concomitant]
  4. ACETAMINOPHEN [Concomitant]

REACTIONS (2)
  - PREMATURE LABOUR [None]
  - TWIN PREGNANCY [None]
